FAERS Safety Report 18224533 (Version 1)
Quarter: 2020Q3

REPORT INFORMATION
  Report Type: Spontaneous
  Country: CN (occurrence: CN)
  Receive Date: 20200902
  Receipt Date: 20200902
  Transmission Date: 20201103
  Serious: Yes (Life-Threatening, Hospitalization, Other)
  Sender: FDA-Public Use
  Company Number: CN-009507513-2008CHN014064

PATIENT
  Age: 69 Year
  Sex: Male
  Weight: 54 kg

DRUGS (5)
  1. KEYTRUDA [Suspect]
     Active Substance: PEMBROLIZUMAB
     Dosage: 200 MG D1
     Dates: start: 20200715
  2. CAPECITABINE. [Concomitant]
     Active Substance: CAPECITABINE
     Indication: GASTRIC CANCER
     Dosage: 3 CAPSULES, BID, PO
     Route: 048
     Dates: start: 20200713, end: 20200727
  3. OXALIPLATIN. [Concomitant]
     Active Substance: OXALIPLATIN
     Dosage: 150 MG, QD, IVGTT
     Route: 041
     Dates: start: 20200715
  4. KEYTRUDA [Suspect]
     Active Substance: PEMBROLIZUMAB
     Indication: GASTRIC CANCER
     Dosage: 200 MG D1
     Dates: start: 20200623
  5. OXALIPLATIN. [Concomitant]
     Active Substance: OXALIPLATIN
     Indication: GASTRIC CANCER
     Dosage: 150 MG, QD, IVGTT
     Route: 041
     Dates: start: 20200623

REACTIONS (10)
  - Agranulocytosis [Recovering/Resolving]
  - Rash papulosquamous [Recovering/Resolving]
  - Rash [Recovering/Resolving]
  - Hepatic function abnormal [Recovering/Resolving]
  - Decreased appetite [Recovering/Resolving]
  - Myasthenia gravis [Recovering/Resolving]
  - Exfoliative rash [Recovering/Resolving]
  - Myocardial infarction [Recovering/Resolving]
  - Myocarditis [Recovering/Resolving]
  - Fatigue [Recovering/Resolving]

NARRATIVE: CASE EVENT DATE: 20200701
